FAERS Safety Report 7311385-0 (Version None)
Quarter: 2011Q1

REPORT INFORMATION
  Report Type: 
  Country: None (occurrence: None)
  Receive Date: 20110224
  Receipt Date: 20110217
  Transmission Date: 20110831
  Serious: Yes (Hospitalization, Other)
  Sender: FDA-Public Use
  Company Number: DE-PFIZER INC-2010128705

PATIENT
  Age: 39 Year
  Sex: Female

DRUGS (8)
  1. ESTRADIOL [Concomitant]
  2. DEKRISTOL [Concomitant]
  3. FERRO SANOL [Concomitant]
  4. MINIRIN ^AVENTIS PHARMA^ [Suspect]
     Indication: DIABETES INSIPIDUS
     Dosage: UNK
     Route: 045
  5. UTROGEST [Concomitant]
  6. HYDROCORTISONE [Concomitant]
  7. GENOTROPIN [Suspect]
     Dosage: 0.2 UNK, UNK
     Dates: start: 20100901
  8. THYROXIN [Concomitant]

REACTIONS (5)
  - NAUSEA [None]
  - OVERDOSE [None]
  - HYPONATRAEMIA [None]
  - VOMITING [None]
  - HEADACHE [None]
